FAERS Safety Report 13045009 (Version 1)
Quarter: 2016Q4

REPORT INFORMATION
  Report Type: Spontaneous
  Country: US (occurrence: US)
  Receive Date: 20161220
  Receipt Date: 20161220
  Transmission Date: 20170207
  Serious: No
  Sender: FDA-Public Use
  Company Number: PHEH2016US033010

PATIENT
  Age: 16 Year
  Sex: Female

DRUGS (1)
  1. PROMACTA [Suspect]
     Active Substance: ELTROMBOPAG OLAMINE
     Indication: IMMUNE THROMBOCYTOPENIC PURPURA
     Dosage: 25 MG/KG, QD
     Route: 048
     Dates: start: 20151114, end: 20161114

REACTIONS (2)
  - Drug administered to patient of inappropriate age [Unknown]
  - Drug effect decreased [Unknown]
